FAERS Safety Report 9222198 (Version 2)
Quarter: 2013Q2

REPORT INFORMATION
  Report Type: Report from Study
  Country: BR (occurrence: BR)
  Receive Date: 20130410
  Receipt Date: 20130507
  Transmission Date: 20140414
  Serious: Yes (Hospitalization, Other)
  Sender: FDA-Public Use
  Company Number: PHHY2013BR033553

PATIENT
  Sex: Female

DRUGS (9)
  1. EXELON PATCH [Suspect]
     Indication: DEMENTIA ALZHEIMER^S TYPE
     Dosage: 13.3 MG, DAILY
     Route: 062
  2. CYCLOBENZAPRINE HYDROCHLORIDE [Concomitant]
     Indication: MYALGIA
     Dosage: 2 DF, DAILY
     Route: 048
  3. LOSARTAN [Concomitant]
     Indication: BLOOD PRESSURE
     Dosage: 1 DF, DAILY
     Route: 048
  4. ESCITALOPRAM OXALATE [Concomitant]
     Indication: AFFECTIVE DISORDER
     Dosage: 1 DF, DAILY
     Route: 048
  5. MODURETIC [Concomitant]
     Indication: BLOOD PRESSURE
     Dosage: 1 DF, DAILY
     Route: 048
  6. SIMVASTATIN [Concomitant]
     Indication: CARDIOVASCULAR DISORDER
     Dosage: 1 DF, DAILY
     Route: 048
  7. CLOPIDOGREL [Concomitant]
     Dosage: 1 DF, DAILY
     Route: 048
  8. NOVONORM [Concomitant]
     Indication: DIABETES MELLITUS
     Dosage: 1 DF, DAILY
     Route: 048
  9. GLIMEPIRIDE [Concomitant]
     Indication: DIABETES MELLITUS
     Dosage: 1 DF, DAILY
     Route: 048

REACTIONS (4)
  - General physical health deterioration [Unknown]
  - Aggression [Unknown]
  - Blood glucose increased [Recovered/Resolved]
  - Stress [Recovered/Resolved]
